FAERS Safety Report 8957706 (Version 2)
Quarter: 2012Q4

REPORT INFORMATION
  Report Type: 
  Country: US (occurrence: US)
  Receive Date: 20121211
  Receipt Date: 20121213
  Transmission Date: 20130627
  Serious: Yes (Life-Threatening, Hospitalization, Other)
  Sender: FDA-Public Use
  Company Number: US-ALEXION PHARMACEUTICALS INC.-A201202315

PATIENT
  Age: 31 Year
  Sex: Male
  Weight: 44.1 kg

DRUGS (7)
  1. SOLIRIS 300MG [Suspect]
     Indication: PAROXYSMAL NOCTURNAL HAEMOGLOBINURIA
     Dosage: 600 mg, qw
     Route: 042
     Dates: start: 20120517, end: 20120517
  2. SOLIRIS 300MG [Suspect]
     Dosage: 600 mg, qw
     Route: 042
     Dates: start: 20121119
  3. COLACE [Concomitant]
     Dosage: 100 mg, bid
  4. COREG [Concomitant]
     Dosage: 3.125 mg, bid
  5. LASIX [Concomitant]
     Dosage: 20 mg, qd
  6. LISINOPRIL [Concomitant]
     Dosage: 2.5 mg, qd
  7. PROVENTIL [Concomitant]
     Dosage: UNK

REACTIONS (11)
  - Unresponsive to stimuli [Recovered/Resolved]
  - Haemolytic anaemia [Recovering/Resolving]
  - Cardiomyopathy [Recovering/Resolving]
  - Jaundice [Recovering/Resolving]
  - Respiratory failure [Recovered/Resolved]
  - Hepatitis C [Recovering/Resolving]
  - Shock [Recovered/Resolved]
  - Renal failure acute [Recovered/Resolved]
  - Metabolic acidosis [Recovering/Resolving]
  - Sepsis [Recovered/Resolved]
  - Cardiac failure congestive [Recovering/Resolving]
